FAERS Safety Report 8558448-X (Version None)
Quarter: 2012Q3

REPORT INFORMATION
  Report Type: 
  Country: None (occurrence: None)
  Receive Date: 20120801
  Receipt Date: 20120705
  Transmission Date: 20120928
  Serious: No
  Sender: FDA-Public Use
  Company Number: US-009507513-2012SP024564

PATIENT

DRUGS (2)
  1. SAPHRIS [Suspect]
     Indication: PSYCHOTIC DISORDER
     Dosage: 5 MG, BID
     Route: 060
     Dates: start: 20120504
  2. ABILIFY [Concomitant]
     Dosage: UNK, QAM
     Route: 048
     Dates: start: 20110701

REACTIONS (1)
  - GAIT DISTURBANCE [None]
